FAERS Safety Report 12843046 (Version 1)
Quarter: 2016Q4

REPORT INFORMATION
  Report Type: Spontaneous
  Country: US (occurrence: US)
  Receive Date: 20161013
  Receipt Date: 20161013
  Transmission Date: 20170207
  Serious: No
  Sender: FDA-Public Use
  Company Number: PHEH2016US026252

PATIENT
  Age: 68 Year
  Sex: Male
  Weight: 196 kg

DRUGS (1)
  1. COSENTYX [Suspect]
     Active Substance: SECUKINUMAB
     Indication: PRODUCT USED FOR UNKNOWN INDICATION
     Route: 065

REACTIONS (6)
  - Paraesthesia [Unknown]
  - Musculoskeletal stiffness [Recovering/Resolving]
  - Feeling jittery [Recovered/Resolved]
  - Joint swelling [Recovering/Resolving]
  - Feeling abnormal [Unknown]
  - Skin swelling [Recovering/Resolving]

NARRATIVE: CASE EVENT DATE: 20160902
